FAERS Safety Report 4304537-5 (Version None)
Quarter: 2004Q1

REPORT INFORMATION
  Report Type: 
  Country: None (occurrence: None)
  Receive Date: 20040224
  Receipt Date: 20040216
  Transmission Date: 20041129
  Serious: Yes (Hospitalization)
  Sender: FDA-Public Use
  Company Number: 2004CG00309

PATIENT
  Age: 63 Year
  Sex: Male
  Weight: 60 kg

DRUGS (4)
  1. TENORMIN [Suspect]
     Dosage: 100 MG QD PO
     Dates: end: 20031029
  2. TRANXENE [Suspect]
     Dosage: 20 MG TID PO
     Dates: end: 20031027
  3. LASILIX [Concomitant]
  4. BEFIZAL [Concomitant]

REACTIONS (16)
  - ANAEMIA [None]
  - ASPARTATE AMINOTRANSFERASE INCREASED [None]
  - ATRIOVENTRICULAR BLOCK FIRST DEGREE [None]
  - BRADYCARDIA [None]
  - ELECTROCARDIOGRAM ABNORMAL [None]
  - EPISTAXIS [None]
  - FEELING HOT [None]
  - GAMMA-GLUTAMYLTRANSFERASE INCREASED [None]
  - JAUNDICE [None]
  - LOSS OF CONSCIOUSNESS [None]
  - MALAISE [None]
  - OCULAR ICTERUS [None]
  - OEDEMA PERIPHERAL [None]
  - RESPIRATORY ARREST [None]
  - SYNCOPE VASOVAGAL [None]
  - VERTIGO [None]
